FAERS Safety Report 7414796-8 (Version None)
Quarter: 2011Q2

REPORT INFORMATION
  Report Type: 
  Country: None (occurrence: None)
  Receive Date: 20110414
  Receipt Date: 20110402
  Transmission Date: 20111010
  Serious: Yes (Hospitalization, Other)
  Sender: FDA-Public Use
  Company Number: US-SANOFI-AVENTIS-2011SA021442

PATIENT
  Age: 71 Year
  Sex: Male
  Weight: 66.8 kg

DRUGS (14)
  1. BLINDED THERAPY [Suspect]
     Indication: VENTRICULAR ARRHYTHMIA
     Dates: start: 20091103
  2. CHOLESTYRAMINE [Concomitant]
  3. OMEPRAZOLE [Concomitant]
     Dates: start: 20090101
  4. NIASPAN [Concomitant]
     Dates: start: 20070101
  5. NITROGLYCERIN [Concomitant]
     Dates: start: 20070101
  6. SIMVASTATIN [Concomitant]
     Dates: start: 20070101
  7. ACETAMINOPHEN [Concomitant]
     Dates: start: 20091101
  8. ASPIRIN [Suspect]
     Route: 065
  9. ASPIRIN [Suspect]
     Route: 048
     Dates: start: 20070101, end: 20110101
  10. LISINOPRIL [Concomitant]
  11. PLAVIX [Suspect]
     Route: 048
     Dates: start: 20070101, end: 20110101
  12. ISOSORBIDE DINITRATE [Concomitant]
     Dates: start: 20090501
  13. VITAMIN D [Concomitant]
     Dates: start: 20100901
  14. CARVEDILOL [Concomitant]

REACTIONS (10)
  - HAEMORRHOIDAL HAEMORRHAGE [None]
  - HAEMATOCRIT DECREASED [None]
  - GASTROINTESTINAL HAEMORRHAGE [None]
  - HYPOTENSION [None]
  - ANAEMIA [None]
  - DIVERTICULUM [None]
  - HAEMOGLOBIN DECREASED [None]
  - HAEMATOCHEZIA [None]
  - HIATUS HERNIA [None]
  - ANGINA PECTORIS [None]
